FAERS Safety Report 12294390 (Version 1)
Quarter: 2016Q2

REPORT INFORMATION
  Report Type: Spontaneous
  Country: US (occurrence: US)
  Receive Date: 20160422
  Receipt Date: 20160422
  Transmission Date: 20160815
  Serious: Yes (Hospitalization, Other)
  Sender: FDA-Public Use
  Company Number: US-ROCHE-1746376

PATIENT
  Sex: Female

DRUGS (1)
  1. XELODA [Suspect]
     Active Substance: CAPECITABINE
     Indication: NEOPLASM MALIGNANT
     Dosage: 4 TABS TWICE DAILY FOR 14 DAYS THEN OFF FOR 7 DAYS
     Route: 048
     Dates: start: 20160322

REACTIONS (2)
  - Urinary tract infection [Unknown]
  - Diarrhoea haemorrhagic [Unknown]
